FAERS Safety Report 8384682-8 (Version None)
Quarter: 2012Q2

REPORT INFORMATION
  Report Type: 
  Country: None (occurrence: None)
  Receive Date: 20120524
  Receipt Date: 20120514
  Transmission Date: 20120825
  Serious: Yes (Hospitalization)
  Sender: FDA-Public Use
  Company Number: IT-ELI_LILLY_AND_COMPANY-IT201205004631

PATIENT
  Sex: Male

DRUGS (4)
  1. ACE INHIBITORS [Concomitant]
  2. ASPIRIN [Concomitant]
     Indication: CORONARY ANGIOPLASTY
  3. BETA BLOCKING AGENTS [Concomitant]
  4. EFFIENT [Suspect]
     Indication: CORONARY ANGIOPLASTY
     Dosage: LOADING DOSE
     Dates: start: 20120407

REACTIONS (5)
  - PETECHIAE [None]
  - EMBOLISM ARTERIAL [None]
  - HAEMATOMA [None]
  - VASCULITIS [None]
  - AORTIC ARTERIOSCLEROSIS [None]
